FAERS Safety Report 6331403-6 (Version None)
Quarter: 2009Q3

REPORT INFORMATION
  Report Type: 
  Country: None (occurrence: None)
  Receive Date: 20090827
  Receipt Date: 20090819
  Transmission Date: 20100115
  Serious: Yes (Hospitalization, Other)
  Sender: FDA-Public Use
  Company Number: US-GENENTECH-288040

PATIENT
  Sex: Female
  Weight: 49.1 kg

DRUGS (12)
  1. AVASTIN [Suspect]
     Indication: MACULAR DEGENERATION
     Dosage: UNK
     Route: 031
     Dates: start: 20090501, end: 20090731
  2. CALCIUM [Concomitant]
     Indication: DRUG USE FOR UNKNOWN INDICATION
     Dosage: UNK
  3. PREDNISONE TAB [Concomitant]
     Indication: SARCOIDOSIS
     Dosage: 2.5 MG, UNK
  4. PREDNISONE TAB [Concomitant]
     Indication: EMPHYSEMA
  5. SPIRIVA [Concomitant]
     Indication: SARCOIDOSIS
     Dosage: UNK
  6. SPIRIVA [Concomitant]
     Indication: EMPHYSEMA
  7. PULMICORT-100 [Concomitant]
     Indication: SARCOIDOSIS
     Dosage: UNK
  8. PULMICORT-100 [Concomitant]
     Indication: EMPHYSEMA
  9. ASPIRIN [Concomitant]
     Indication: DRUG USE FOR UNKNOWN INDICATION
     Dosage: UNK
  10. VITAMIN D [Concomitant]
     Indication: DRUG USE FOR UNKNOWN INDICATION
     Dosage: UNK
  11. FOSAMAX [Concomitant]
     Indication: DRUG USE FOR UNKNOWN INDICATION
     Dosage: UNK
  12. PRESERVISION LUTEIN [Concomitant]
     Indication: DRUG USE FOR UNKNOWN INDICATION
     Dosage: UNK

REACTIONS (3)
  - CEREBROVASCULAR ACCIDENT [None]
  - DISORIENTATION [None]
  - SPEECH DISORDER [None]
